FAERS Safety Report 4832095-5 (Version None)
Quarter: 2005Q4

REPORT INFORMATION
  Report Type: 
  Country: None (occurrence: None)
  Receive Date: 20051116
  Receipt Date: 20051107
  Transmission Date: 20060501
  Serious: Yes (Other)
  Sender: FDA-Public Use
  Company Number: 2005JP002159

PATIENT
  Age: 22 Year
  Sex: Male

DRUGS (4)
  1. PROGRAF [Suspect]
     Indication: RENAL TRANSPLANT
     Dates: start: 20040101
  2. AZATHIOPRINE [Suspect]
     Indication: RENAL TRANSPLANT
     Dates: start: 20040101
  3. PREDNISONE [Suspect]
     Indication: RENAL TRANSPLANT
     Dosage: SEE IMAGE
     Dates: start: 20040101, end: 20040101
  4. PREDNISONE [Suspect]
     Indication: RENAL TRANSPLANT
     Dosage: SEE IMAGE
     Dates: start: 20040101

REACTIONS (6)
  - BIOPSY BONE MARROW ABNORMAL [None]
  - BONE DENSITY DECREASED [None]
  - COMPUTERISED TOMOGRAM ABNORMAL [None]
  - GAIT DISTURBANCE [None]
  - HAEMORRHAGE [None]
  - OSTEONECROSIS [None]
